FAERS Safety Report 4587956-1 (Version None)
Quarter: 2005Q1

REPORT INFORMATION
  Report Type: 
  Country: None (occurrence: None)
  Receive Date: 20050215
  Receipt Date: 20050207
  Transmission Date: 20050727
  Serious: Yes (Life-Threatening, Hospitalization, Other)
  Sender: FDA-Public Use
  Company Number: HQWYE844525JAN05

PATIENT
  Age: 42 Year
  Sex: Female

DRUGS (2)
  1. MINOCYCLINE HCL [Suspect]
     Indication: RASH PUSTULAR
     Dosage: 200 MG DAILY
     Route: 048
     Dates: start: 20040801, end: 20041002
  2. ETRETINATE          (ETRETINATE) [Concomitant]

REACTIONS (3)
  - FEELING ABNORMAL [None]
  - JAW FRACTURE [None]
  - LOSS OF CONSCIOUSNESS [None]
